FAERS Safety Report 4880031-8 (Version None)
Quarter: 2006Q1

REPORT INFORMATION
  Report Type: 
  Country: None (occurrence: None)
  Receive Date: 20060111
  Receipt Date: 20051223
  Transmission Date: 20060701
  Serious: No
  Sender: FDA-Public Use
  Company Number: US200512000105

PATIENT
  Age: 50 Year
  Sex: Female
  Weight: 99.8 kg

DRUGS (9)
  1. ZYPREXA [Suspect]
     Indication: SCHIZOPHRENIA, PARANOID TYPE
     Dosage: SEE IMAGE
     Route: 048
     Dates: start: 20010202, end: 20031001
  2. ZYPREXA [Suspect]
     Indication: SCHIZOPHRENIA, PARANOID TYPE
     Dosage: SEE IMAGE
     Route: 048
     Dates: start: 20030909
  3. ZYPREXA [Suspect]
     Dosage: 10 MG, EACH EVENING,
     Dates: start: 20040501, end: 20050101
  4. TRAZODONE (TRAZODONE) [Concomitant]
  5. DEPAKOTE [Concomitant]
  6. LEVOXYL [Concomitant]
  7. DIOVAN ^CIBA-GEIGY^ (VALSARTAN) [Concomitant]
  8. VITAMIN E [Concomitant]
  9. CALCIUM CARBONATE (CALCIUM CARBONATE) TABLET [Concomitant]

REACTIONS (5)
  - BREAST CANCER FEMALE [None]
  - DIABETES MELLITUS NON-INSULIN-DEPENDENT [None]
  - IRON DEFICIENCY ANAEMIA [None]
  - MENSTRUATION IRREGULAR [None]
  - METRORRHAGIA [None]
